FAERS Safety Report 6496617-3 (Version None)
Quarter: 2009Q4

REPORT INFORMATION
  Report Type: 
  Country: None (occurrence: None)
  Receive Date: 20091210
  Receipt Date: 20091204
  Transmission Date: 20100525
  Serious: Yes (Life-Threatening)
  Sender: FDA-Public Use
  Company Number: 2009SP039805

PATIENT
  Sex: Male

DRUGS (4)
  1. ROCURONIUM BROMIDE [Suspect]
     Indication: NEUROMUSCULAR BLOCKING THERAPY
     Dosage: IV;
     Route: 042
     Dates: start: 20091126
  2. BRON ACE (L-CARBOCISTEINE) [Concomitant]
  3. NARON (ACETAMINOPHEN) [Concomitant]
  4. SEDES (ETHENZAMIDE) [Concomitant]

REACTIONS (3)
  - CARDIAC ARREST [None]
  - VENTRICULAR FIBRILLATION [None]
  - VENTRICULAR TACHYCARDIA [None]
